FAERS Safety Report 9368751 (Version 1)
Quarter: 2013Q2

REPORT INFORMATION
  Report Type: Report from Study
  Country: JP (occurrence: JP)
  Receive Date: 20130626
  Receipt Date: 20130626
  Transmission Date: 20140414
  Serious: Yes (Hospitalization, Other)
  Sender: FDA-Public Use
  Company Number: JP-ASTRAZENECA-2011SE31958

PATIENT
  Age: 53 Year
  Sex: Male

DRUGS (35)
  1. CRESTOR [Suspect]
     Indication: HYPERCHOLESTEROLAEMIA
     Route: 048
     Dates: start: 20110218, end: 20111106
  2. CRESTOR [Suspect]
     Indication: HYPERCHOLESTEROLAEMIA
     Route: 048
     Dates: start: 20111107, end: 20120705
  3. CRESTOR [Suspect]
     Indication: HYPERCHOLESTEROLAEMIA
     Route: 048
     Dates: start: 20120706, end: 20130130
  4. CRESTOR [Suspect]
     Indication: HYPERCHOLESTEROLAEMIA
     Route: 048
     Dates: start: 20130131
  5. LEVEMIR [Concomitant]
     Indication: DIABETES MELLITUS
     Route: 065
     Dates: start: 20100715, end: 20110216
  6. LEVEMIR [Concomitant]
     Indication: DIABETES MELLITUS
     Route: 065
     Dates: start: 20110217, end: 20110827
  7. LEVEMIR [Concomitant]
     Indication: DIABETES MELLITUS
     Route: 065
     Dates: start: 20110928, end: 20121128
  8. VICTOZA [Concomitant]
     Indication: DIABETES MELLITUS
     Route: 065
     Dates: start: 20110727, end: 20121029
  9. NOVORAPID 30 MIX [Concomitant]
     Indication: DIABETES MELLITUS
     Route: 065
     Dates: start: 20110218, end: 20110927
  10. NOVORAPID 30 MIX [Concomitant]
     Indication: DIABETES MELLITUS
     Route: 065
     Dates: start: 20110928, end: 20111213
  11. NOVORAPID 30 MIX [Concomitant]
     Indication: DIABETES MELLITUS
     Route: 065
     Dates: start: 20111214, end: 20120705
  12. NOVORAPID 30 MIX [Concomitant]
     Indication: DIABETES MELLITUS
     Route: 065
     Dates: start: 20120706, end: 20120807
  13. MICARDIS [Concomitant]
     Indication: HYPERTENSION
     Route: 065
     Dates: start: 20100609, end: 20130130
  14. ALLEGRA [Concomitant]
     Route: 048
     Dates: start: 20110310, end: 20110427
  15. PL (NON-PYRINE COLD PREPARATION) [Concomitant]
     Route: 048
     Dates: start: 20120125, end: 20120206
  16. ASTOMIN [Concomitant]
     Route: 048
     Dates: start: 20120125, end: 20120201
  17. ASTOMIN [Concomitant]
     Route: 048
     Dates: start: 20130223, end: 20130228
  18. FLOMOX [Concomitant]
     Route: 048
     Dates: start: 20120125, end: 20120201
  19. MEDICON [Concomitant]
     Route: 048
     Dates: start: 20120128, end: 20120202
  20. MUCODYNE [Concomitant]
     Route: 048
     Dates: start: 20120128, end: 20120202
  21. METGLUCO [Concomitant]
     Indication: DIABETES MELLITUS
     Dates: start: 20120808, end: 20120911
  22. METGLUCO [Concomitant]
     Indication: DIABETES MELLITUS
     Dates: start: 20120912
  23. EQUA [Concomitant]
     Indication: DIABETES MELLITUS
     Dates: start: 20121030
  24. LANTUS [Concomitant]
     Indication: DIABETES MELLITUS
     Dates: start: 20121129, end: 20130118
  25. LANTUS [Concomitant]
     Indication: DIABETES MELLITUS
     Dates: start: 20130119, end: 20130121
  26. LANTUS [Concomitant]
     Indication: DIABETES MELLITUS
     Dates: start: 20130122, end: 20130130
  27. LANTUS [Concomitant]
     Indication: DIABETES MELLITUS
     Dates: start: 20130131, end: 20130312
  28. LANTUS [Concomitant]
     Indication: DIABETES MELLITUS
     Dates: start: 20130501
  29. LANTUS [Concomitant]
     Indication: DIABETES MELLITUS
     Dates: start: 20130613
  30. LOXONIN [Concomitant]
     Route: 048
     Dates: start: 20121129, end: 20121205
  31. LOXONIN [Concomitant]
     Route: 048
     Dates: start: 20121227, end: 20130327
  32. SELBEX [Concomitant]
     Route: 048
     Dates: start: 20121129, end: 20121205
  33. CELECOX [Concomitant]
     Route: 048
     Dates: start: 20121206, end: 20121226
  34. ESOMEPRAZOLE [Concomitant]
     Route: 048
     Dates: start: 20121206, end: 20130123
  35. TAKEPRON [Concomitant]
     Route: 048
     Dates: start: 20130104, end: 20130327

REACTIONS (4)
  - Pleurisy [Recovered/Resolved]
  - Intervertebral disc protrusion [Recovering/Resolving]
  - Rhinitis allergic [Recovering/Resolving]
  - Pharyngitis [Recovered/Resolved]
